FAERS Safety Report 24257203 (Version 1)
Quarter: 2024Q3

REPORT INFORMATION
  Report Type: Spontaneous
  Country: CA (occurrence: CA)
  Receive Date: 20240828
  Receipt Date: 20240828
  Transmission Date: 20241017
  Serious: Yes (Death, Other)
  Sender: CELLTRION
  Company Number: CA-CELLTRION INC.-2021CA019662

PATIENT

DRUGS (3)
  1. TRUXIMA [Suspect]
     Active Substance: RITUXIMAB-ABBS
     Indication: Rheumatoid arthritis
     Dosage: 1000 MG X 2, DAY 1 AND DAY 15
     Route: 042
     Dates: start: 20211005
  2. TYLENOL [Concomitant]
     Active Substance: ACETAMINOPHEN
     Dosage: IF NEEDED
  3. HYDROCORTISONE ACETATE [Concomitant]
     Active Substance: HYDROCORTISONE ACETATE

REACTIONS (2)
  - Death [Fatal]
  - Off label use [Unknown]
